FAERS Safety Report 12223970 (Version 3)
Quarter: 2016Q2

REPORT INFORMATION
  Report Type: Report from Study
  Country: CA (occurrence: CA)
  Receive Date: 20160330
  Receipt Date: 20160421
  Transmission Date: 20160815
  Serious: Yes (Hospitalization)
  Sender: FDA-Public Use
  Company Number: CA-ABBVIE-16P-028-1594869-00

PATIENT
  Age: 53 Year
  Sex: Male
  Weight: 68.1 kg

DRUGS (16)
  1. VITAMIN B12 [Concomitant]
     Active Substance: CYANOCOBALAMIN
     Indication: FATIGUE
     Route: 030
  2. CEPHALEXIN. [Concomitant]
     Active Substance: CEPHALEXIN
     Indication: CELLULITIS
     Route: 048
     Dates: start: 20160113, end: 20160119
  3. TYLENOL WITH CODEINE [Concomitant]
     Active Substance: ACETAMINOPHEN\CODEINE PHOSPHATE
     Indication: BACK PAIN
     Route: 048
     Dates: start: 201501
  4. FLUCONAZOLE. [Concomitant]
     Active Substance: FLUCONAZOLE
     Indication: TINEA PEDIS
     Route: 048
     Dates: start: 20160115, end: 20160129
  5. SALBUTAMOL SULFATE [Concomitant]
     Active Substance: ALBUTEROL SULFATE
     Indication: CHRONIC OBSTRUCTIVE PULMONARY DISEASE
     Route: 055
     Dates: start: 2014
  6. MARIJUANA [Concomitant]
     Active Substance: CANNABIS SATIVA SUBSP. INDICA TOP
     Indication: PRODUCT USED FOR UNKNOWN INDICATION
  7. DOXYCYCLINE. [Concomitant]
     Active Substance: DOXYCYCLINE
     Indication: CELLULITIS
     Route: 048
     Dates: start: 20160125, end: 201602
  8. HOLKIRA PAK [Suspect]
     Active Substance: DASABUVIR\OMBITASVIR\PARITAPREVIR\RITONAVIR
     Indication: HEPATITIS C
     Dosage: 2 12.5/ 75/ 50 MG TAB QD AND 1 DASABUVIR 250 MG TAB BID
     Route: 048
     Dates: start: 20151120, end: 20160212
  9. MODERIBA [Suspect]
     Active Substance: RIBAVIRIN
     Indication: HEPATITIS C
     Dosage: AM 600 MG ;?PM 400 MG
     Route: 048
     Dates: start: 20151120, end: 20160212
  10. METFORMIN [Concomitant]
     Active Substance: METFORMIN HYDROCHLORIDE
     Indication: DIABETES MELLITUS
     Route: 048
     Dates: start: 2014
  11. IMODIUM [Concomitant]
     Active Substance: LOPERAMIDE HYDROCHLORIDE
     Indication: DIARRHOEA
     Route: 048
     Dates: start: 20151204
  12. FLUTICASONE [Concomitant]
     Active Substance: FLUTICASONE\FLUTICASONE PROPIONATE
     Indication: CHRONIC OBSTRUCTIVE PULMONARY DISEASE
     Route: 055
     Dates: start: 2014
  13. TESTOSTERONE. [Concomitant]
     Active Substance: TESTOSTERONE
     Indication: FATIGUE
     Route: 030
     Dates: start: 2015
  14. BETAMETHASONE VALERATE. [Concomitant]
     Active Substance: BETAMETHASONE VALERATE
     Indication: RASH
     Route: 061
     Dates: start: 20160115, end: 201602
  15. CLONAZEPAM. [Concomitant]
     Active Substance: CLONAZEPAM
     Indication: ANXIETY
     Route: 048
     Dates: start: 201506
  16. COCAINE [Concomitant]
     Active Substance: COCAINE
     Indication: PRODUCT USED FOR UNKNOWN INDICATION

REACTIONS (5)
  - Cellulitis [Unknown]
  - Diarrhoea [Unknown]
  - Skin ulcer [Recovering/Resolving]
  - Tinea pedis [Unknown]
  - Rash [Unknown]

NARRATIVE: CASE EVENT DATE: 2016
